FAERS Safety Report 9125241 (Version 2)
Quarter: 2013Q4

REPORT INFORMATION
  Report Type: Spontaneous
  Country: US (occurrence: US)
  Receive Date: 20130117
  Receipt Date: 20131017
  Transmission Date: 20140711
  Serious: Yes (Death, Hospitalization, Disabling, Other)
  Sender: FDA-Public Use
  Company Number: US-009507513-1301USA007500

PATIENT
  Sex: Female
  Weight: 39.46 kg

DRUGS (2)
  1. FOSAMAX [Suspect]
     Indication: OSTEOPENIA
     Dosage: 70 MG, QW
     Route: 048
     Dates: start: 20041117, end: 200802
  2. ALENDRONATE SODIUM [Suspect]
     Indication: OSTEOPENIA
     Dosage: 70 MG, QW
     Route: 048
     Dates: start: 200803, end: 200901

REACTIONS (50)
  - Femur fracture [Unknown]
  - Hip arthroplasty [Unknown]
  - Angina pectoris [Unknown]
  - Death [Fatal]
  - Debridement [Unknown]
  - Tooth extraction [Unknown]
  - Adverse event [Unknown]
  - Disability [Unknown]
  - Osteonecrosis of jaw [Not Recovered/Not Resolved]
  - Osteomyelitis [Unknown]
  - Biopsy bone [Unknown]
  - Chronic obstructive pulmonary disease [Unknown]
  - Hypothyroidism [Unknown]
  - Adverse event [Unknown]
  - Hyperlipidaemia [Unknown]
  - Device failure [Unknown]
  - Rib fracture [Unknown]
  - Exostosis [Unknown]
  - Cervical vertebral fracture [Unknown]
  - Poor dental condition [Unknown]
  - Foot fracture [Unknown]
  - Spinal osteoarthritis [Unknown]
  - Osteoarthritis [Unknown]
  - Pneumonia [Unknown]
  - Weight decreased [Unknown]
  - Cachexia [Unknown]
  - Cervical spinal stenosis [Unknown]
  - Lung infiltration [Unknown]
  - Peripheral vascular disorder [Unknown]
  - Glucose tolerance impaired [Unknown]
  - Blood pressure fluctuation [Unknown]
  - Tremor [Unknown]
  - Anxiety [Unknown]
  - Nervousness [Unknown]
  - Increased tendency to bruise [Unknown]
  - Emphysema [Unknown]
  - Osteoarthritis [Unknown]
  - Exostosis [Unknown]
  - Osteoarthritis [Unknown]
  - Intervertebral disc protrusion [Unknown]
  - Sinus disorder [Unknown]
  - Pulmonary mass [Unknown]
  - Transient ischaemic attack [Unknown]
  - Mental disorder [Unknown]
  - Depression [Unknown]
  - Heart rate irregular [Unknown]
  - Anaemia [Unknown]
  - Headache [Unknown]
  - Back pain [Not Recovered/Not Resolved]
  - Dizziness [Unknown]
